FAERS Safety Report 9725792 (Version 1)
Quarter: 2013Q4

REPORT INFORMATION
  Report Type: Spontaneous
  Country: US (occurrence: None)
  Receive Date: 20131129
  Receipt Date: 20131129
  Transmission Date: 20140711
  Serious: Yes (Death)
  Sender: FDA-Public Use
  Company Number: 2013P1021384

PATIENT
  Age: 57 Year
  Sex: Female

DRUGS (11)
  1. METFORMIN [Suspect]
  2. PIOGLITAZONE AND GLIMEPIRIDE [Concomitant]
  3. MIRTAZAPINE [Concomitant]
  4. TRAZODONE [Concomitant]
  5. LOSARTAN [Concomitant]
  6. CLONAZEPAM [Concomitant]
  7. UBIDECARENONE [Concomitant]
  8. ASPIRIN [Concomitant]
  9. UNSPECIFIED VITAMINS [Concomitant]
  10. ATORVASTATIN [Concomitant]
  11. GLIPIZIDE [Concomitant]

REACTIONS (8)
  - Vomiting [None]
  - Diarrhoea [None]
  - Stomatitis [None]
  - Heart rate increased [None]
  - Blood glucose increased [None]
  - Hypotension [None]
  - Depressed level of consciousness [None]
  - Completed suicide [None]
